FAERS Safety Report 9805306 (Version 1)
Quarter: 2014Q1

REPORT INFORMATION
  Report Type: Spontaneous
  Country: AU (occurrence: None)
  Receive Date: 20140106
  Receipt Date: 20140106
  Transmission Date: 20141002
  Serious: Yes (Other)
  Sender: FDA-Public Use
  Company Number: 2013SCDP000091

PATIENT
  Age: 52 Year
  Sex: Male

DRUGS (1)
  1. 2% XYLOCAINE DENTAL WITH EPINEPHRINE NOVOCOL PHARMACEUTICAL, CANADA [Suspect]
     Route: 004

REACTIONS (7)
  - Vth nerve injury [None]
  - Paraesthesia [None]
  - Hypoaesthesia [None]
  - Hypoaesthesia oral [None]
  - Sensory disturbance [None]
  - Thermohypoaesthesia [None]
  - Type IV hypersensitivity reaction [None]
